FAERS Safety Report 7914606-6 (Version None)
Quarter: 2011Q4

REPORT INFORMATION
  Report Type: 
  Country: None (occurrence: None)
  Receive Date: 20111115
  Receipt Date: 20111102
  Transmission Date: 20120403
  Serious: Yes (Hospitalization)
  Sender: FDA-Public Use
  Company Number: PHHO2011US16120

PATIENT
  Sex: Female
  Weight: 81.179 kg

DRUGS (7)
  1. COZAAR [Concomitant]
     Dosage: 100 MG, UNK
  2. LANTUS [Concomitant]
     Dosage: 60 U, UNK
  3. SIMVASTATIN [Concomitant]
     Dosage: 80 MG, UNK
  4. AMLODIPINE [Concomitant]
     Dosage: 10 MG, UNK
  5. NOVOLOG [Concomitant]
     Dosage: 20 U, UNK
  6. LASIX [Concomitant]
     Dosage: 40 U, UNK
  7. ALISKIREN [Suspect]
     Indication: CARDIOVASCULAR DISORDER
     Dosage: 300 MG, UNK
     Route: 048
     Dates: start: 20090611

REACTIONS (3)
  - DUODENAL NEOPLASM [None]
  - DIABETIC GASTROPARESIS [None]
  - PELVIC MASS [None]
